FAERS Safety Report 16712575 (Version 1)
Quarter: 2019Q3

REPORT INFORMATION
  Report Type: Spontaneous
  Country: US (occurrence: US)
  Receive Date: 20190816
  Receipt Date: 20190816
  Transmission Date: 20191004
  Serious: No
  Sender: FDA-Public Use
  Company Number: PHEH2019US032972

PATIENT
  Sex: Female

DRUGS (1)
  1. EXFORGE [Suspect]
     Active Substance: AMLODIPINE BESYLATE\VALSARTAN
     Indication: PRODUCT USED FOR UNKNOWN INDICATION
     Dosage: 1 DF, QD (5-160 MG)
     Route: 065

REACTIONS (6)
  - Chest pain [Unknown]
  - Contusion [Unknown]
  - Back injury [Unknown]
  - Road traffic accident [Unknown]
  - Neck injury [Unknown]
  - Discomfort [Unknown]
